FAERS Safety Report 4293658-1 (Version None)
Quarter: 2004Q1

REPORT INFORMATION
  Report Type: 
  Country: None (occurrence: None)
  Receive Date: 20040212
  Receipt Date: 20031117
  Transmission Date: 20041129
  Serious: Yes (Hospitalization)
  Sender: FDA-Public Use
  Company Number: PHEH2003US10570

PATIENT
  Age: 15 Year
  Sex: Male
  Weight: 60 kg

DRUGS (5)
  1. TRILEPTAL [Suspect]
     Indication: CONVULSION
     Dosage: 900 MG, BID
     Dates: start: 20000101
  2. DEPAKOTE [Concomitant]
  3. EFFEXOR [Concomitant]
  4. COLACE [Concomitant]
  5. CHEMOTHERAPEUTICS,OTHER [Concomitant]

REACTIONS (5)
  - ACUTE LYMPHOCYTIC LEUKAEMIA [None]
  - BIPOLAR DISORDER [None]
  - CONVULSION [None]
  - DRUG LEVEL CHANGED [None]
  - UNEVALUABLE EVENT [None]
